FAERS Safety Report 4690548-7 (Version None)
Quarter: 2005Q2

REPORT INFORMATION
  Report Type: 
  Country: None (occurrence: None)
  Receive Date: 20050614
  Receipt Date: 20050614
  Transmission Date: 20051028
  Serious: Yes (Other)
  Sender: FDA-Public Use
  Company Number: None

PATIENT
  Age: 50 Year
  Sex: Female
  Weight: 52.1637 kg

DRUGS (1)
  1. ARIMIDEX [Suspect]
     Indication: BREAST CANCER
     Dosage: ONCE A DAY   ORAL
     Route: 048
     Dates: start: 20040401, end: 20041106

REACTIONS (2)
  - ARTHRALGIA [None]
  - BALANCE DISORDER [None]
